FAERS Safety Report 6944073-0 (Version None)
Quarter: 2010Q3

REPORT INFORMATION
  Report Type: 
  Country: None (occurrence: None)
  Receive Date: 20100827
  Receipt Date: 20100818
  Transmission Date: 20110219
  Serious: No
  Sender: FDA-Public Use
  Company Number: US-BIOGENIDEC-2010BI016337

PATIENT
  Age: 54 Year
  Sex: Female

DRUGS (1)
  1. TYSABRI [Suspect]
     Indication: MULTIPLE SCLEROSIS
     Route: 042
     Dates: start: 20090917

REACTIONS (8)
  - CLUSTER HEADACHE [None]
  - CUPULOLITHIASIS [None]
  - DIZZINESS [None]
  - FALL [None]
  - MOBILITY DECREASED [None]
  - NASOPHARYNGITIS [None]
  - NAUSEA [None]
  - ROTATOR CUFF SYNDROME [None]
